FAERS Safety Report 5440555-1 (Version None)
Quarter: 2007Q3

REPORT INFORMATION
  Report Type: 
  Country: None (occurrence: None)
  Receive Date: 20070831
  Receipt Date: 20070820
  Transmission Date: 20080115
  Serious: Yes (Hospitalization, Disabling)
  Sender: FDA-Public Use
  Company Number: US-GENENTECH-246366

PATIENT
  Sex: Female

DRUGS (3)
  1. BEVACIZUMAB [Suspect]
     Indication: BREAST CANCER METASTATIC
     Dosage: UNK, UNK
  2. ABRAXANE [Suspect]
     Indication: BREAST CANCER METASTATIC
  3. NEUPOGEN [Concomitant]
     Indication: COLON CANCER METASTATIC

REACTIONS (6)
  - BLOOD PHOSPHORUS DECREASED [None]
  - DIARRHOEA [None]
  - HAEMATOCRIT DECREASED [None]
  - HAEMOGLOBIN DECREASED [None]
  - MUCOSAL INFLAMMATION [None]
  - RED BLOOD CELL COUNT DECREASED [None]
